FAERS Safety Report 11326393 (Version 1)
Quarter: 2015Q3

REPORT INFORMATION
  Report Type: Spontaneous
  Country: ES (occurrence: ES)
  Receive Date: 20150731
  Receipt Date: 20150731
  Transmission Date: 20151125
  Serious: Yes (Hospitalization)
  Sender: FDA-Public Use
  Company Number: ES-JNJFOC-20150712961

PATIENT
  Age: 79 Year
  Sex: Female

DRUGS (9)
  1. DUROGESIC [Suspect]
     Active Substance: FENTANYL
     Indication: BACK PAIN
     Route: 062
  2. DUROGESIC [Suspect]
     Active Substance: FENTANYL
     Indication: BACK PAIN
     Dosage: 50UG/HR PATCH X 4
     Route: 062
     Dates: start: 20150130, end: 20150130
  3. OMEPRAZOLE. [Concomitant]
     Active Substance: OMEPRAZOLE
     Indication: PRODUCT USED FOR UNKNOWN INDICATION
     Route: 065
  4. ZAMENE [Concomitant]
     Active Substance: DEFLAZACORT
     Indication: ARTHRITIS
     Route: 065
  5. SEROXAT [Concomitant]
     Active Substance: PAROXETINE HYDROCHLORIDE
     Indication: DEPRESSION
     Route: 065
  6. NOLOTIL [Concomitant]
     Active Substance: METAMIZOLE
     Indication: BACK PAIN
     Dosage: EVERY 8 HOURS
     Route: 065
  7. CELECOXIB. [Concomitant]
     Active Substance: CELECOXIB
     Indication: BACK PAIN
     Route: 065
  8. LYRICA [Concomitant]
     Active Substance: PREGABALIN
     Indication: BACK PAIN
     Route: 065
  9. ZAMENE [Concomitant]
     Active Substance: DEFLAZACORT
     Indication: MYALGIA
     Route: 065

REACTIONS (12)
  - Status epilepticus [Unknown]
  - Hyperglycaemia [Recovered/Resolved]
  - Coma [Recovered/Resolved]
  - Miosis [Unknown]
  - Intentional product misuse [Unknown]
  - Respiratory failure [Recovered/Resolved]
  - Treatment noncompliance [Unknown]
  - Respiratory acidosis [Recovered/Resolved]
  - Drug ineffective [Unknown]
  - Pneumonia aspiration [Unknown]
  - Toxicity to various agents [Unknown]
  - Hypoxia [Recovered/Resolved]

NARRATIVE: CASE EVENT DATE: 20150130
